FAERS Safety Report 10084377 (Version 2)
Quarter: 2014Q2

REPORT INFORMATION
  Report Type: Spontaneous
  Country: US (occurrence: US)
  Receive Date: 20140417
  Receipt Date: 20140421
  Transmission Date: 20141212
  Serious: Yes (Hospitalization)
  Sender: FDA-Public Use
  Company Number: US-BAXTER-2014BAX018575

PATIENT
  Sex: Female

DRUGS (7)
  1. DIANEAL LOW CALCIUM [Suspect]
     Indication: PERITONEAL DIALYSIS
     Route: 033
     Dates: start: 20140201
  2. DIANEAL LOW CALCIUM [Suspect]
     Route: 033
     Dates: start: 20140201
  3. DIANEAL LOW CALCIUM [Suspect]
     Indication: PERITONEAL DIALYSIS
     Route: 033
  4. DIANEAL LOW CALCIUM [Suspect]
     Indication: PERITONEAL DIALYSIS
     Route: 033
     Dates: start: 20140201
  5. DIANEAL LOW CALCIUM [Suspect]
     Route: 033
     Dates: start: 20140201
  6. EXTRANEAL [Suspect]
     Indication: PERITONEAL DIALYSIS
     Route: 033
     Dates: start: 20140201
  7. EXTRANEAL [Suspect]
     Route: 033
     Dates: start: 20140201

REACTIONS (1)
  - Musculoskeletal chest pain [Not Recovered/Not Resolved]
